FAERS Safety Report 7311070-5 (Version None)
Quarter: 2011Q1

REPORT INFORMATION
  Report Type: 
  Country: None (occurrence: None)
  Receive Date: 20110224
  Receipt Date: 20110222
  Transmission Date: 20110831
  Serious: Yes (Hospitalization, Other)
  Sender: FDA-Public Use
  Company Number: US-PFIZER INC-2010124293

PATIENT
  Sex: Female

DRUGS (2)
  1. CHANTIX [Suspect]
     Indication: SMOKING CESSATION THERAPY
     Dosage: UNK
     Dates: start: 20081001
  2. CHANTIX [Suspect]
     Dosage: UNK
     Dates: start: 20100801

REACTIONS (5)
  - DEPRESSION [None]
  - AGITATION [None]
  - MOOD ALTERED [None]
  - SUICIDE ATTEMPT [None]
  - INTENTIONAL OVERDOSE [None]
